FAERS Safety Report 7689651-9 (Version None)
Quarter: 2011Q3

REPORT INFORMATION
  Report Type: 
  Country: None (occurrence: None)
  Receive Date: 20110817
  Receipt Date: 20110809
  Transmission Date: 20111222
  Serious: Yes (Hospitalization)
  Sender: FDA-Public Use
  Company Number: FR-ROCHE-796512

PATIENT
  Age: 59 Year
  Sex: Female

DRUGS (10)
  1. METHOTREXATE [Suspect]
     Indication: RHEUMATOID ARTHRITIS
     Route: 048
     Dates: start: 20010101
  2. ACTEMRA [Suspect]
     Indication: RHEUMATOID ARTHRITIS
     Dosage: FORM: INJECTION
     Route: 042
     Dates: start: 20100501, end: 20110622
  3. CALCIUM CARBONATE [Concomitant]
  4. ESOMEPRAZOLE MAGNESIUM [Suspect]
     Route: 048
  5. FOLIC ACID [Concomitant]
  6. METHOTREXATE [Suspect]
     Route: 048
     Dates: start: 20110428, end: 20110702
  7. PREDNISONE [Concomitant]
  8. AMITRIPTYLINE HCL [Suspect]
     Route: 048
     Dates: end: 20110702
  9. ALENDRONATE SODIUM [Suspect]
     Route: 048
     Dates: end: 20110702
  10. METOPROLOL TARTRATE [Suspect]
     Route: 048
     Dates: end: 20110702

REACTIONS (3)
  - PYREXIA [None]
  - INTERSTITIAL LUNG DISEASE [None]
  - DYSPNOEA [None]
